FAERS Safety Report 8165280-8 (Version None)
Quarter: 2012Q1

REPORT INFORMATION
  Report Type: 
  Country: None (occurrence: None)
  Receive Date: 20120222
  Receipt Date: 20120222
  Transmission Date: 20120608
  Serious: Yes (Other)
  Sender: FDA-Public Use
  Company Number: None

PATIENT
  Age: 47 Year
  Sex: Female

DRUGS (1)
  1. NEUTROGENA MICRODERMABRASION SYSTEM [Suspect]
     Indication: DERMABRASION
     Dosage: TOPICAL
     Route: 061
     Dates: start: 20110811, end: 20110811

REACTIONS (13)
  - LACRIMATION INCREASED [None]
  - NAUSEA [None]
  - CHEST DISCOMFORT [None]
  - PNEUMONIA [None]
  - EYE IRRITATION [None]
  - OROPHARYNGEAL PAIN [None]
  - DRUG HYPERSENSITIVITY [None]
  - DYSPNOEA [None]
  - CHEMICAL EYE INJURY [None]
  - OCULAR HYPERAEMIA [None]
  - EYE SWELLING [None]
  - PERIORBITAL HAEMATOMA [None]
  - COUGH [None]
